FAERS Safety Report 8582955-7 (Version None)
Quarter: 2012Q3

REPORT INFORMATION
  Report Type: 
  Country: None (occurrence: None)
  Receive Date: 20120809
  Receipt Date: 20120807
  Transmission Date: 20120928
  Serious: Yes (Hospitalization)
  Sender: FDA-Public Use
  Company Number: FR-PFIZER INC-2012179732

PATIENT
  Age: 42 Year
  Sex: Female
  Weight: 63 kg

DRUGS (2)
  1. PERINDOPRIL ERBUMINE [Concomitant]
     Indication: BLOOD PRESSURE INCREASED
     Dosage: 2 MG, 1X/DAY
     Route: 048
     Dates: start: 20110801
  2. SUTENT [Suspect]
     Dosage: 50 MG, UNK
     Route: 048
     Dates: start: 20110307, end: 20110802

REACTIONS (1)
  - OEDEMA [None]
